FAERS Safety Report 8115193-2 (Version None)
Quarter: 2012Q1

REPORT INFORMATION
  Report Type: 
  Country: None (occurrence: None)
  Receive Date: 20120206
  Receipt Date: 20120201
  Transmission Date: 20120608
  Serious: Yes (Other)
  Sender: FDA-Public Use
  Company Number: JP-B.I. PHARMACEUTICALS,INC./RIDGEFIELD-2012-BP-02104NB

PATIENT
  Age: 33 Year
  Sex: Male

DRUGS (1)
  1. TELMISARTAN/AMLODIPINE [Suspect]
     Dosage: STRENGTH;TELMISARTAN40MG/AMLODIPINE BESILATE5MG DAILY DOSE; MORE THAN 40 TABLETS
     Route: 048
     Dates: start: 20120201, end: 20120201

REACTIONS (2)
  - HUNGER [None]
  - OVERDOSE [None]
